FAERS Safety Report 7164792-3 (Version None)
Quarter: 2010Q4

REPORT INFORMATION
  Report Type: 
  Country: None (occurrence: None)
  Receive Date: 20101215
  Receipt Date: 20101209
  Transmission Date: 20110411
  Serious: Yes (Other)
  Sender: FDA-Public Use
  Company Number: IT-PFIZER INC-2010169001

PATIENT
  Sex: Female

DRUGS (1)
  1. IRINOTECAN HCL [Suspect]

REACTIONS (4)
  - LARYNGOSPASM [None]
  - PARAESTHESIA [None]
  - PARAESTHESIA ORAL [None]
  - RASH [None]
